FAERS Safety Report 5710547-3 (Version None)
Quarter: 2008Q2

REPORT INFORMATION
  Report Type: 
  Country: None (occurrence: None)
  Receive Date: 20080415
  Receipt Date: 20080404
  Transmission Date: 20081010
  Serious: Yes (Hospitalization, Other)
  Sender: FDA-Public Use
  Company Number: 2008-01165

PATIENT
  Sex: Female
  Weight: 55.8 kg

DRUGS (2)
  1. VELCADE [Suspect]
     Indication: BRONCHIOLOALVEOLAR CARCINOMA
     Dosage: 1.6 MG/M2, IV BOLUS
     Route: 040
     Dates: start: 20071002, end: 20080304
  2. VERAPAMIL [Concomitant]

REACTIONS (12)
  - ALANINE AMINOTRANSFERASE INCREASED [None]
  - ASPARTATE AMINOTRANSFERASE INCREASED [None]
  - ASTHENIA [None]
  - BILE DUCT OBSTRUCTION [None]
  - BLOOD ALKALINE PHOSPHATASE INCREASED [None]
  - DIARRHOEA [None]
  - FATIGUE [None]
  - HEPATIC FAILURE [None]
  - HYPERBILIRUBINAEMIA [None]
  - LETHARGY [None]
  - MALAISE [None]
  - PRURITUS [None]
